FAERS Safety Report 5704724-5 (Version None)
Quarter: 2008Q2

REPORT INFORMATION
  Report Type: 
  Country: None (occurrence: None)
  Receive Date: 20080414
  Receipt Date: 20080403
  Transmission Date: 20081010
  Serious: Yes (Other)
  Sender: FDA-Public Use
  Company Number: US-PFIZER INC-2008012147

PATIENT
  Sex: Male
  Weight: 79.4 kg

DRUGS (23)
  1. GEODON [Suspect]
     Indication: AGITATION
     Route: 030
     Dates: start: 20071220, end: 20071221
  2. GEODON [Suspect]
     Indication: CEREBROVASCULAR ACCIDENT
  3. GEODON [Suspect]
     Indication: HYPERTENSIVE ENCEPHALOPATHY
  4. GEODON [Suspect]
     Indication: AGGRESSION
  5. GEODON [Suspect]
     Indication: PARANOIA
  6. ZYPREXA [Suspect]
     Dosage: DAILY DOSE:7.5MG
     Route: 048
  7. ANTIHYPERTENSIVES [Concomitant]
  8. ATIVAN [Concomitant]
  9. COLACE [Concomitant]
  10. DEPAKOTE [Concomitant]
  11. ASPIRIN [Concomitant]
  12. FLOMAX ^CSL^ [Concomitant]
  13. HYDROCHLOROTHIAZIDE [Concomitant]
  14. KLONOPIN [Concomitant]
  15. LISINOPRIL [Concomitant]
  16. MINOXIDIL [Concomitant]
  17. METOPROLOL [Concomitant]
  18. POTASSIUM CHLORIDE [Concomitant]
  19. AMLODIPINE [Concomitant]
  20. FAMOTIDINE [Concomitant]
  21. TEGRETOL [Concomitant]
  22. IBUPROFEN [Concomitant]
  23. CATAPRES-TTS-1 [Concomitant]

REACTIONS (2)
  - NEUROLEPTIC MALIGNANT SYNDROME [None]
  - SEPSIS [None]
